FAERS Safety Report 25394394 (Version 2)
Quarter: 2025Q2

REPORT INFORMATION
  Report Type: Spontaneous
  Country: DE (occurrence: DE)
  Receive Date: 20250604
  Receipt Date: 20250609
  Transmission Date: 20250717
  Serious: Yes (Other)
  Sender: ROCHE
  Company Number: DE-002147023-NVSC2025DE087573

PATIENT
  Sex: Male

DRUGS (3)
  1. LUCENTIS [Suspect]
     Active Substance: RANIBIZUMAB
     Indication: Retinal vein occlusion
     Dosage: UNK UNK, BID (2X 2025)
     Route: 065
  2. NEVANAC [Suspect]
     Active Substance: NEPAFENAC
     Indication: Macular oedema
     Route: 047
  3. CANDESARTAN [Concomitant]
     Active Substance: CANDESARTAN
     Indication: Product used for unknown indication
     Route: 065

REACTIONS (2)
  - Renal impairment [Unknown]
  - Blood pressure abnormal [Unknown]
